FAERS Safety Report 8461462-6 (Version None)
Quarter: 2012Q2

REPORT INFORMATION
  Report Type: 
  Country: None (occurrence: None)
  Receive Date: 20120625
  Receipt Date: 20120611
  Transmission Date: 20120825
  Serious: Yes (Death, Hospitalization)
  Sender: FDA-Public Use
  Company Number: DE-RANBAXY-2009RR-27637

PATIENT
  Age: 78 Year
  Sex: Female
  Weight: 65 kg

DRUGS (10)
  1. VALSARTAN [Suspect]
     Indication: HYPERTENSION
     Dosage: 160 MG, QD
     Route: 048
     Dates: end: 20090805
  2. LEVOTHYROXINE SODIUM [Concomitant]
     Indication: AUTOIMMUNE THYROIDITIS
     Dosage: 100 UG, QD
     Route: 048
  3. MOXONIDINE [Concomitant]
     Indication: HYPERTENSION
     Dosage: UNK MG, QD
     Route: 048
  4. RAMIPRIL [Suspect]
     Indication: HYPERTENSION
     Dosage: 5 MG, BID
     Route: 048
     Dates: end: 20090805
  5. DOXACOR [Concomitant]
     Indication: HYPERTENSION
     Dosage: 1 MG, TID
     Route: 048
     Dates: end: 20090805
  6. METOPROLOL TARTRATE [Concomitant]
     Indication: HYPERTENSION
     Dosage: 100 MG, BID
     Route: 048
  7. SULPIRIDE [Concomitant]
     Indication: DEPRESSION
     Dosage: 50 MG, QD
     Route: 048
  8. RASILEZ [Suspect]
     Indication: HYPERTENSION
     Dosage: 150 MG, QD
     Route: 048
     Dates: start: 20080601
  9. RASILEZ [Suspect]
     Dosage: 300 MG/DAY
     Route: 065
     Dates: start: 20090806
  10. MINIASAL [Concomitant]
     Indication: PROPHYLAXIS
     Dosage: 100 MG, QD
     Route: 048

REACTIONS (2)
  - HYPONATRAEMIA [None]
  - DRUG INTERACTION [None]
